FAERS Safety Report 6792330-3 (Version None)
Quarter: 2010Q2

REPORT INFORMATION
  Report Type: 
  Country: None (occurrence: None)
  Receive Date: 20100624
  Receipt Date: 20100612
  Transmission Date: 20101027
  Serious: Yes (Other)
  Sender: FDA-Public Use
  Company Number: US-GENENTECH-303113

PATIENT

DRUGS (1)
  1. RITUXIMAB [Suspect]
     Indication: SYSTEMIC SCLEROSIS
     Dosage: 1000 MG, Q2W
     Route: 042

REACTIONS (2)
  - PROSTATE CANCER [None]
  - SCLERODERMA RENAL CRISIS [None]
